FAERS Safety Report 16337285 (Version 4)
Quarter: 2019Q3

REPORT INFORMATION
  Report Type: Spontaneous
  Country: US (occurrence: US)
  Receive Date: 20190521
  Receipt Date: 20190719
  Transmission Date: 20191004
  Serious: No
  Sender: FDA-Public Use
  Company Number: US-PFIZER INC-2019162300

PATIENT
  Age: 77 Year
  Sex: Female
  Weight: 62.13 kg

DRUGS (1)
  1. GABAPENTIN. [Suspect]
     Active Substance: GABAPENTIN
     Indication: LUMBAR RADICULOPATHY
     Dosage: 100 MG, 1X/DAY (QHS, AT BEDTIME)
     Route: 048
     Dates: start: 201711, end: 201711

REACTIONS (7)
  - Nausea [Recovered/Resolved]
  - Off label use [Recovered/Resolved]
  - Vomiting [Recovered/Resolved]
  - Malaise [Unknown]
  - Drug ineffective for unapproved indication [Recovered/Resolved]
  - Influenza like illness [Unknown]
  - Diarrhoea [Recovered/Resolved]

NARRATIVE: CASE EVENT DATE: 201711
